FAERS Safety Report 4303960-2 (Version None)
Quarter: 2004Q1

REPORT INFORMATION
  Report Type: 
  Country: None (occurrence: None)
  Receive Date: 20040223
  Receipt Date: 20031027
  Transmission Date: 20041129
  Serious: No
  Sender: FDA-Public Use
  Company Number: PHEH2003US08736

PATIENT
  Age: 41 Year
  Sex: Female
  Weight: 74.4 kg

DRUGS (8)
  1. ZELNORM [Suspect]
     Indication: IRRITABLE BOWEL SYNDROME
     Dosage: 6 MG,BID, ORAL
     Route: 048
     Dates: start: 20030410, end: 20030917
  2. WELLBUTRIN [Concomitant]
  3. PRAVACHOL [Concomitant]
  4. DEPAKOTE [Concomitant]
  5. AMBIEN [Concomitant]
  6. TRILEPTAL [Concomitant]
  7. ESTROSTEP [Concomitant]
  8. LEXAPRO/USA/(ESCITALOPRAM) [Concomitant]

REACTIONS (1)
  - ARTHRALGIA [None]
